FAERS Safety Report 7481179-4 (Version None)
Quarter: 2011Q2

REPORT INFORMATION
  Report Type: 
  Country: None (occurrence: None)
  Receive Date: 20110512
  Receipt Date: 20110512
  Transmission Date: 20111010
  Serious: No
  Sender: FDA-Public Use
  Company Number: None

PATIENT
  Age: 27 Year
  Sex: Female
  Weight: 81.6475 kg

DRUGS (4)
  1. CELEBREX [Suspect]
     Indication: ARTHRITIS
     Dosage: 200 MG PILL 1 X/DAY  (ONLY TOOK 2 PILLS)
  2. CELEBREX [Suspect]
     Indication: CYST REMOVAL
     Dosage: 200 MG PILL 1 X/DAY  (ONLY TOOK 2 PILLS)
  3. CELEBREX [Suspect]
     Indication: MENSTRUAL DISORDER
     Dosage: 200 MG PILL 1 X/DAY  (ONLY TOOK 2 PILLS)
  4. XANAX [Concomitant]

REACTIONS (1)
  - HALLUCINATION [None]
